FAERS Safety Report 17943416 (Version 2)
Quarter: 2020Q3

REPORT INFORMATION
  Report Type: Spontaneous
  Country: US (occurrence: US)
  Receive Date: 20200625
  Receipt Date: 20200702
  Transmission Date: 20201103
  Serious: No
  Sender: FDA-Public Use
  Company Number: US-009507513-2006USA009204

PATIENT
  Age: 65 Year
  Sex: Female

DRUGS (1)
  1. PROVENTIL [Suspect]
     Active Substance: ALBUTEROL
     Indication: ASTHMA
     Dosage: 2 PUFFS, EVERY FOUR HOURS
     Dates: start: 20200623

REACTIONS (8)
  - Product dose omission issue [Unknown]
  - Dizziness [Unknown]
  - Adverse event [Unknown]
  - Drug ineffective [Unknown]
  - Memory impairment [Unknown]
  - Dyspnoea [Unknown]
  - Illness [Unknown]
  - Chest discomfort [Unknown]

NARRATIVE: CASE EVENT DATE: 202006
